FAERS Safety Report 18236595 (Version 1)
Quarter: 2020Q3

REPORT INFORMATION
  Report Type: Spontaneous
  Country: US (occurrence: US)
  Receive Date: 20200907
  Receipt Date: 20200907
  Transmission Date: 20201103
  Serious: No
  Sender: FDA-Public Use
  Company Number: US-ITALFARMACO SPA-2089448

PATIENT
  Age: 53 Year
  Sex: Male

DRUGS (9)
  1. MELOXICAM. [Concomitant]
     Active Substance: MELOXICAM
  2. TUMS [Concomitant]
     Active Substance: CALCIUM CARBONATE
  3. TRINTELLIX [Concomitant]
     Active Substance: VORTIOXETINE HYDROBROMIDE
  4. TIGLUTIK [Suspect]
     Active Substance: RILUZOLE
     Indication: AMYOTROPHIC LATERAL SCLEROSIS
     Route: 048
     Dates: start: 20200108
  5. OMEPRAZOLE. [Concomitant]
     Active Substance: OMEPRAZOLE
  6. OXYCODONE. [Concomitant]
     Active Substance: OXYCODONE HYDROCHLORIDE
  7. VALIUM [Concomitant]
     Active Substance: DIAZEPAM
  8. MEXILETINE HYDROCHLORIDE. [Concomitant]
     Active Substance: MEXILETINE HYDROCHLORIDE
  9. MAALOX ANTACID [Concomitant]
     Active Substance: ALUMINUM HYDROXIDE\DIMETHICONE\MAGNESIUM HYDROXIDE

REACTIONS (3)
  - Pharyngeal hypoaesthesia [Unknown]
  - Abdominal discomfort [Unknown]
  - Abdominal distension [Unknown]
